FAERS Safety Report 6495160-5 (Version None)
Quarter: 2009Q4

REPORT INFORMATION
  Report Type: 
  Country: None (occurrence: None)
  Receive Date: 20091214
  Receipt Date: 20090507
  Transmission Date: 20100525
  Serious: Yes (Other)
  Sender: FDA-Public Use
  Company Number: US-BRISTOL-MYERS SQUIBB COMPANY-14615959

PATIENT
  Age: 40 Year
  Sex: Male

DRUGS (6)
  1. ABILIFY [Suspect]
     Indication: MAJOR DEPRESSION
     Dosage: 1 DF= 15(UNITS NOT SPECIFIED) STARTED WITH BID CHANGED TO QD
  2. DEPAKOTE [Suspect]
  3. BUPROPION HCL [Suspect]
  4. PRISTIQ [Suspect]
  5. KLONOPIN [Suspect]
  6. HALOPERIDOL [Suspect]

REACTIONS (1)
  - PARKINSONISM [None]
